FAERS Safety Report 9841897 (Version 1)
Quarter: 2013Q4

REPORT INFORMATION
  Report Type: Spontaneous
  Country: US (occurrence: None)
  Receive Date: 20131219
  Receipt Date: 20131219
  Transmission Date: 20140711
  Serious: Yes (Death)
  Sender: FDA-Public Use
  Company Number: 163-20785-12122097

PATIENT
  Age: 62 None
  Sex: Male

DRUGS (8)
  1. THALOMID (THALIDOMIDE) (100 MILLIGRAM, CAPSULES) [Suspect]
     Indication: PLASMA CELL MYELOMA
     Dosage: 100 MG, 1 IN 1 D, PO
     Route: 048
     Dates: start: 201111, end: 20120118
  2. VELCADE ((BORTEZOMIB) [Concomitant]
  3. DEXAMETHASONE (DEXAMETHASONE) [Concomitant]
  4. ACYCLOVIR (ACICLOVIR) [Concomitant]
  5. DIFLUCAN (FLUCONAZOLE) [Concomitant]
  6. PROCRIT (ERYTHROPOIETIN) [Concomitant]
  7. ZOLOFT (SERTRALINE HYDROCHLORIDE) [Concomitant]
  8. ANTIBIOTICS (ANTIBIOTICS) [Concomitant]

REACTIONS (2)
  - Plasma cell myeloma [None]
  - Pneumonia [None]
